FAERS Safety Report 7141922-0 (Version None)
Quarter: 2010Q4

REPORT INFORMATION
  Report Type: 
  Country: None (occurrence: None)
  Receive Date: 20101203
  Receipt Date: 20101203
  Transmission Date: 20110411
  Serious: Yes (Other)
  Sender: FDA-Public Use
  Company Number: None

PATIENT
  Age: 75 Year
  Sex: Female
  Weight: 82.5547 kg

DRUGS (2)
  1. AVELOX [Suspect]
     Indication: BRONCHITIS
     Dosage: 400 MG 1 A DAY
     Dates: start: 20101012
  2. AVELOX [Suspect]
     Indication: SINUSITIS
     Dosage: 400 MG 1 A DAY
     Dates: start: 20101012

REACTIONS (2)
  - TENDON RUPTURE [None]
  - TENDONITIS [None]
